FAERS Safety Report 4933992-2 (Version None)
Quarter: 2006Q1

REPORT INFORMATION
  Report Type: 
  Country: None (occurrence: None)
  Receive Date: 20060307
  Receipt Date: 20060224
  Transmission Date: 20060701
  Serious: Yes (Hospitalization)
  Sender: FDA-Public Use
  Company Number: JP-JNJFOC-20050605902

PATIENT
  Sex: Male

DRUGS (3)
  1. ITRIZOLE [Suspect]
     Indication: CANDIDA PNEUMONIA
     Route: 048
     Dates: start: 20050502, end: 20050516
  2. FOSFLUCONAZOLE [Suspect]
     Indication: CANDIDA PNEUMONIA
     Dates: start: 20050414, end: 20050501
  3. FLUCONAZOLE [Concomitant]
     Indication: CANDIDA PNEUMONIA
     Route: 065
     Dates: start: 20050403, end: 20050413

REACTIONS (5)
  - CATARACT [None]
  - DIABETIC NEPHROPATHY [None]
  - NEPHRITIS INTERSTITIAL [None]
  - RENAL FAILURE ACUTE [None]
  - RETINOPATHY [None]
